FAERS Safety Report 12975251 (Version 1)
Quarter: 2016Q4

REPORT INFORMATION
  Report Type: Spontaneous
  Country: US (occurrence: US)
  Receive Date: 20161123
  Receipt Date: 20161123
  Transmission Date: 20170207
  Serious: No
  Sender: FDA-Public Use
  Company Number: None

PATIENT
  Age: 50 Year
  Sex: Male
  Weight: 76.5 kg

DRUGS (5)
  1. CEFDINIR. [Suspect]
     Active Substance: CEFDINIR
     Indication: LOWER RESPIRATORY TRACT INFECTION
     Dates: start: 20161118, end: 20161123
  2. SIMVASTATIN. [Concomitant]
     Active Substance: SIMVASTATIN
  3. METOPROLOL. [Concomitant]
     Active Substance: METOPROLOL
  4. PLAVIX [Concomitant]
     Active Substance: CLOPIDOGREL BISULFATE
  5. ASPIRIN. [Concomitant]
     Active Substance: ASPIRIN

REACTIONS (2)
  - Jaundice [None]
  - Mucosal discolouration [None]

NARRATIVE: CASE EVENT DATE: 20161119
